FAERS Safety Report 18956292 (Version 1)
Quarter: 2021Q1

REPORT INFORMATION
  Report Type: Spontaneous
  Country: US (occurrence: US)
  Receive Date: 20210301
  Receipt Date: 20210301
  Transmission Date: 20210420
  Serious: No
  Sender: FDA-Public Use
  Company Number: US-TEVA-2021-US-1884708

PATIENT
  Sex: Female

DRUGS (1)
  1. TRAZODONE HYDROCHLORIDE. [Suspect]
     Active Substance: TRAZODONE HYDROCHLORIDE
     Route: 065

REACTIONS (8)
  - Gait disturbance [Unknown]
  - Tinnitus [Unknown]
  - Product quality issue [Unknown]
  - Hypobarism [Unknown]
  - Asthenia [Unknown]
  - Hypoaesthesia [Unknown]
  - Nausea [Unknown]
  - Feeling cold [Unknown]
